FAERS Safety Report 8536573-7 (Version None)
Quarter: 2012Q3

REPORT INFORMATION
  Report Type: 
  Country: None (occurrence: None)
  Receive Date: 20120718
  Receipt Date: 20120718
  Transmission Date: 20120928
  Serious: Yes (Hospitalization)
  Sender: FDA-Public Use
  Company Number: None

PATIENT
  Age: 2 Year
  Sex: Male
  Weight: 13 kg

DRUGS (1)
  1. AMOXICILLIN [Suspect]
     Indication: OTITIS MEDIA
     Dosage: 6 ML 2 TIMES A DAY PO
     Route: 048
     Dates: start: 20120111, end: 20120119

REACTIONS (2)
  - JOINT SWELLING [None]
  - ERYTHEMA MULTIFORME [None]
